FAERS Safety Report 5146839-9 (Version None)
Quarter: 2006Q4

REPORT INFORMATION
  Report Type: 
  Country: None (occurrence: None)
  Receive Date: 20061107
  Receipt Date: 20061107
  Transmission Date: 20070319
  Serious: Yes (Other)
  Sender: FDA-Public Use
  Company Number: None

PATIENT
  Age: 51 Year
  Sex: Female
  Weight: 61.2356 kg

DRUGS (3)
  1. MELOXICAM [Suspect]
     Indication: OSTEOARTHRITIS
     Dosage: ONE TABLET  DAILY  PO
     Route: 048
     Dates: start: 20060828, end: 20061018
  2. ACIPHEX [Concomitant]
  3. NEXIUM [Concomitant]

REACTIONS (4)
  - GASTRIC ULCER [None]
  - MOVEMENT DISORDER [None]
  - PAIN [None]
  - THERAPEUTIC RESPONSE UNEXPECTED WITH DRUG SUBSTITUTION [None]
